FAERS Safety Report 21839804 (Version 3)
Quarter: 2024Q1

REPORT INFORMATION
  Report Type: Report from Study
  Country: CO (occurrence: CO)
  Receive Date: 20230109
  Receipt Date: 20240112
  Transmission Date: 20240410
  Serious: Yes (Life-Threatening, Hospitalization, Other)
  Sender: FDA-Public Use
  Company Number: CO-ABBVIE-4261934

PATIENT
  Age: 71 Year
  Sex: Male
  Weight: 60 kg

DRUGS (4)
  1. SKYRIZI [Suspect]
     Active Substance: RISANKIZUMAB-RZAA
     Indication: Psoriasis
     Dosage: FORM STRENGTH: 150
     Route: 058
     Dates: start: 20211208, end: 20221003
  2. SKYRIZI [Suspect]
     Active Substance: RISANKIZUMAB-RZAA
     Dosage: FORM STRENGTH: 150 MILLIGRAM
     Route: 058
     Dates: start: 20230818, end: 20230818
  3. SKYRIZI [Suspect]
     Active Substance: RISANKIZUMAB-RZAA
     Dosage: FORM STRENGTH: 150
     Route: 058
     Dates: start: 20231229
  4. ASPIRIN [Concomitant]
     Active Substance: ASPIRIN
     Indication: Hypertension
     Dosage: 1 UNKNOWN

REACTIONS (8)
  - Cardiac disorder [Recovering/Resolving]
  - Cardiac disorder [Recovered/Resolved]
  - Procedural pain [Recovering/Resolving]
  - Productive cough [Recovered/Resolved]
  - Chest pain [Recovering/Resolving]
  - Chest discomfort [Recovered/Resolved]
  - Venous occlusion [Recovered/Resolved]
  - Arthropathy [Recovered/Resolved]

NARRATIVE: CASE EVENT DATE: 20221221
